FAERS Safety Report 6270319-0 (Version None)
Quarter: 2009Q3

REPORT INFORMATION
  Report Type: 
  Country: None (occurrence: None)
  Receive Date: 20090716
  Receipt Date: 20090707
  Transmission Date: 20100115
  Serious: Yes (Hospitalization)
  Sender: FDA-Public Use
  Company Number: A0789079A

PATIENT
  Age: 53 Year
  Sex: Male

DRUGS (2)
  1. AVANDIA [Suspect]
     Route: 065
     Dates: start: 20011224, end: 20071011
  2. ROSIGLITAZONE MALEATE [Suspect]
     Route: 048
     Dates: start: 20011224, end: 20071011

REACTIONS (2)
  - CARDIAC FAILURE CONGESTIVE [None]
  - MYOCARDIAL INFARCTION [None]
